FAERS Safety Report 24349034 (Version 1)
Quarter: 2024Q3

REPORT INFORMATION
  Report Type: Spontaneous
  Country: CN (occurrence: CN)
  Receive Date: 20240923
  Receipt Date: 20240923
  Transmission Date: 20241017
  Serious: Yes (Other)
  Sender: GE HEALTHCARE
  Company Number: CN-GE HEALTHCARE-2024CSU010611

PATIENT
  Age: 79 Year
  Sex: Female
  Weight: 57.5 kg

DRUGS (1)
  1. VISIPAQUE [Suspect]
     Active Substance: IODIXANOL
     Indication: Imaging procedure
     Dosage: 75 ML, TOTAL
     Route: 013
     Dates: start: 20240910, end: 20240910

REACTIONS (4)
  - Musculoskeletal discomfort [Recovering/Resolving]
  - Asthenia [Recovering/Resolving]
  - Eyelid oedema [Recovering/Resolving]
  - Localised oedema [Recovering/Resolving]

NARRATIVE: CASE EVENT DATE: 20240911
